FAERS Safety Report 22181646 (Version 1)
Quarter: 2023Q2

REPORT INFORMATION
  Report Type: Other
  Country: None (occurrence: FR)
  Receive Date: 20230406
  Receipt Date: 20230406
  Transmission Date: 20230721
  Serious: Yes (Hospitalization)
  Sender: FDA-Public Use
  Company Number: FR-Air Products and Chemicals, Inc. -2139988

PATIENT
  Age: 87 Year
  Sex: Female

DRUGS (1)
  1. OXYGEN [Suspect]
     Active Substance: OXYGEN

REACTIONS (1)
  - Encephalopathy [Recovered/Resolved]
